FAERS Safety Report 6453250-7 (Version None)
Quarter: 2009Q4

REPORT INFORMATION
  Report Type: 
  Country: None (occurrence: None)
  Receive Date: 20091124
  Receipt Date: 20091113
  Transmission Date: 20100525
  Serious: Yes (Other)
  Sender: FDA-Public Use
  Company Number: AT-JNJFOC-20091001622

PATIENT
  Age: 21 Year
  Sex: Female
  Weight: 98 kg

DRUGS (4)
  1. REMICADE [Suspect]
     Dosage: RECEIVED A TOTAL OF 4 INFUSIONS OF 400 MG AND 1 500MG.
     Route: 042
     Dates: start: 20060511, end: 20061228
  2. REMICADE [Suspect]
     Indication: CROHN'S DISEASE
     Route: 042
     Dates: start: 20060511, end: 20061228
  3. AZATHIOPRINE [Concomitant]
     Indication: CROHN'S DISEASE
  4. CORTISONE [Concomitant]
     Indication: CROHN'S DISEASE

REACTIONS (1)
  - DRUG EXPOSURE DURING PREGNANCY [None]
